FAERS Safety Report 7161317-3 (Version None)
Quarter: 2010Q4

REPORT INFORMATION
  Report Type: 
  Country: None (occurrence: None)
  Receive Date: 20101215
  Receipt Date: 20101202
  Transmission Date: 20110411
  Serious: Yes (Other)
  Sender: FDA-Public Use
  Company Number: US-RB-016593-10

PATIENT
  Age: 18 Year
  Sex: Male

DRUGS (1)
  1. DELSYM [Suspect]
     Dosage: PATIENT DRANK HALF OF THE BOTTLE AND THE OTHER HALF A FEW HOURS LATER.
     Route: 048

REACTIONS (4)
  - DRY MOUTH [None]
  - DYSURIA [None]
  - FEELING ABNORMAL [None]
  - OVERDOSE [None]
